FAERS Safety Report 5406592-8 (Version None)
Quarter: 2007Q3

REPORT INFORMATION
  Report Type: 
  Country: None (occurrence: None)
  Receive Date: 20070806
  Receipt Date: 20070730
  Transmission Date: 20080115
  Serious: Yes (Other)
  Sender: FDA-Public Use
  Company Number: FR-PFIZER INC-2007058974

PATIENT
  Age: 73 Year
  Sex: Male

DRUGS (1)
  1. SUTENT [Suspect]
     Indication: METASTATIC RENAL CELL CARCINOMA
     Dosage: DAILY DOSE:50MG-FREQ:CYCLIC OD; 4 WEEKS ON/2 WEEKS OFF

REACTIONS (2)
  - HYPERTHYROIDISM [None]
  - HYPOTHYROIDISM [None]
